FAERS Safety Report 10419460 (Version 1)
Quarter: 2014Q2

REPORT INFORMATION
  Report Type: Spontaneous
  Country: US (occurrence: None)
  Receive Date: 20140625
  Receipt Date: 20140625
  Transmission Date: 20141212
  Serious: No
  Sender: FDA-Public Use
  Company Number: A-US2014-94370

PATIENT
  Age: 45 Year
  Sex: Female

DRUGS (4)
  1. OPSUMIT (MACITENTAN) TABLET [Suspect]
     Indication: PULMONARY ARTERIAL HYPERTENSION
     Route: 048
     Dates: start: 20131216
  2. VELETRI (EPOPROSTENOL SODIUM) INJECTION [Suspect]
     Dosage: 27 MG/KG . PER MIN, INTRAVENOUS  01/12/2011 TO UNK
     Route: 042
     Dates: start: 20110112
  3. COUMADIN (WARFARIN SODIUM) [Concomitant]
  4. REVATIO (SILDENAFIL CITRATE) [Concomitant]

REACTIONS (4)
  - Fluid retention [None]
  - Abdominal distension [None]
  - Stress [None]
  - Weight increased [None]
